FAERS Safety Report 23179057 (Version 1)
Quarter: 2023Q4

REPORT INFORMATION
  Report Type: Spontaneous
  Country: CA (occurrence: CA)
  Receive Date: 20231113
  Receipt Date: 20231113
  Transmission Date: 20240110
  Serious: Yes (Hospitalization)
  Sender: FDA-Public Use
  Company Number: CA-PFIZER INC-202300358139

PATIENT
  Age: 68 Year
  Sex: Female

DRUGS (12)
  1. INLYTA [Suspect]
     Active Substance: AXITINIB
     Dosage: 3 MG, 2X/DAY
     Route: 048
  2. ACETAMINOPHEN [Concomitant]
     Active Substance: ACETAMINOPHEN
  3. BETAMETHASONE [Concomitant]
     Active Substance: BETAMETHASONE\BETAMETHASONE DIPROPIONATE
  4. BISMUTH [Concomitant]
     Active Substance: BISMUTH
  5. BISOPROLOL [Concomitant]
     Active Substance: BISOPROLOL\BISOPROLOL FUMARATE
     Route: 065
  6. FUSIDATE SODIUM [Concomitant]
     Active Substance: FUSIDATE SODIUM
  7. IRON SUCROSE [Concomitant]
     Active Substance: IRON SUCROSE
  8. LOPERAMIDE [Concomitant]
     Active Substance: LOPERAMIDE
  9. LORAZEPAM [Concomitant]
     Active Substance: LORAZEPAM
  10. NIFEDIPINE [Concomitant]
     Active Substance: NIFEDIPINE
  11. RAMIPRIL [Concomitant]
     Active Substance: RAMIPRIL
     Route: 065
  12. PYRIDOXINE HYDROCHLORIDE [Concomitant]
     Active Substance: PYRIDOXINE HYDROCHLORIDE
     Route: 048

REACTIONS (4)
  - Acute pulmonary oedema [Recovering/Resolving]
  - Dyspnoea [Recovering/Resolving]
  - Fatigue [Recovering/Resolving]
  - Hypertensive urgency [Recovering/Resolving]
